FAERS Safety Report 17404003 (Version 1)
Quarter: 2020Q1

REPORT INFORMATION
  Report Type: Spontaneous
  Country: CZ (occurrence: CZ)
  Receive Date: 20200211
  Receipt Date: 20200211
  Transmission Date: 20200409
  Serious: Yes (Other)
  Sender: FDA-Public Use
  Company Number: CZ-MYLANLABS-2020M1015408

PATIENT
  Age: 62 Year
  Sex: Male

DRUGS (7)
  1. VITAMIN B12 [Concomitant]
     Active Substance: CYANOCOBALAMIN
     Indication: PRODUCT USED FOR UNKNOWN INDICATION
     Dosage: 1000 MICROGRAM(1000 UG, CYCLIC (EVERY 4 CYCLES))
     Route: 030
  2. APREPITANT. [Suspect]
     Active Substance: APREPITANT
     Indication: NAUSEA
     Dosage: UNK
     Route: 065
  3. PEMETREXED. [Suspect]
     Active Substance: PEMETREXED
     Indication: EPITHELIOID MESOTHELIOMA
     Dosage: 500 MILLIGRAM/SQ. METER, Q3W (500 MG/M2, Q3W (2 TIMES))
     Route: 042
  4. CISPLATIN. [Suspect]
     Active Substance: CISPLATIN
     Indication: EPITHELIOID MESOTHELIOMA
     Dosage: 80 MILLIGRAM/SQ. METER, Q3W(80 MG/M2, Q3W)
     Route: 042
  5. FOLATE [Concomitant]
     Active Substance: FOLATE SODIUM
     Indication: PRODUCT USED FOR UNKNOWN INDICATION
     Dosage: UNK
     Route: 016
  6. PEMETREXED. [Suspect]
     Active Substance: PEMETREXED
     Dosage: UNK
     Route: 065
  7. MIRTAZAPINE. [Suspect]
     Active Substance: MIRTAZAPINE
     Indication: ANXIETY
     Dosage: UNK
     Route: 065

REACTIONS (7)
  - Product use in unapproved indication [Unknown]
  - Pain [Not Recovered/Not Resolved]
  - Chest pain [Unknown]
  - Epithelioid mesothelioma [Recovering/Resolving]
  - Neoplasm recurrence [Recovering/Resolving]
  - Nephropathy toxic [Recovering/Resolving]
  - Renal impairment [Not Recovered/Not Resolved]
